FAERS Safety Report 7008236-0 (Version None)
Quarter: 2010Q3

REPORT INFORMATION
  Report Type: 
  Country: None (occurrence: None)
  Receive Date: 20100920
  Receipt Date: 20100909
  Transmission Date: 20110219
  Serious: Yes (Other)
  Sender: FDA-Public Use
  Company Number: 2010SP048471

PATIENT
  Sex: Female

DRUGS (1)
  1. ELOCON [Suspect]
     Indication: TINEA PEDIS
     Dosage: 0.1 PCT.
     Route: 061

REACTIONS (1)
  - SEPSIS [None]
